FAERS Safety Report 23358665 (Version 1)
Quarter: 2024Q1

REPORT INFORMATION
  Report Type: Spontaneous
  Country: AR (occurrence: AR)
  Receive Date: 20240102
  Receipt Date: 20240102
  Transmission Date: 20240409
  Serious: Yes (Other)
  Sender: FDA-Public Use
  Company Number: AR-PFIZER INC-PV202300205532

PATIENT
  Age: 82 Year
  Sex: Female

DRUGS (1)
  1. IBRANCE [Suspect]
     Active Substance: PALBOCICLIB
     Dosage: UNK

REACTIONS (7)
  - Cystitis [Unknown]
  - Choking [Unknown]
  - Oropharyngeal spasm [Unknown]
  - Urinary incontinence [Unknown]
  - Aphonia [Unknown]
  - Productive cough [Unknown]
  - Pain [Unknown]
